FAERS Safety Report 16098447 (Version 5)
Quarter: 2021Q4

REPORT INFORMATION
  Report Type: Spontaneous
  Country: DE (occurrence: DE)
  Receive Date: 20190321
  Receipt Date: 20211101
  Transmission Date: 20220303
  Serious: Yes (Life-Threatening, Hospitalization, Other)
  Sender: FDA-Public Use
  Company Number: DE-ALEXION-A201904260

PATIENT
  Age: 22 Year
  Sex: Female

DRUGS (5)
  1. SOLIRIS [Suspect]
     Active Substance: ECULIZUMAB
     Indication: Paroxysmal nocturnal haemoglobinuria
     Dosage: UNK, Q2W
     Route: 065
  2. MENINGOCOCCAL GROUP B VACCINE [Suspect]
     Active Substance: MENINGOCOCCAL GROUP B VACCINE
     Indication: Prophylaxis
     Dosage: UNK
     Route: 065
  3. MENVEO [Suspect]
     Active Substance: NEISSERIA MENINGITIDIS GROUP A CAPSULAR OLIGOSACCHARIDE DIPHTHERIA CRM197 PROTEIN CONJUGATE ANTIGEN\
     Indication: Prophylaxis
     Route: 065
  4. CEFTRIAXONE [Suspect]
     Active Substance: CEFTRIAXONE
     Indication: Infection
     Dosage: 750 MG, UNK
     Route: 065
  5. CEFTRIAXONE [Suspect]
     Active Substance: CEFTRIAXONE
     Indication: Antibiotic therapy

REACTIONS (23)
  - Meningococcal sepsis [Unknown]
  - Disseminated intravascular coagulation [Unknown]
  - Intravascular haemolysis [Unknown]
  - Tachycardia [Unknown]
  - Pancytopenia [Unknown]
  - Inflammation [Recovered/Resolved]
  - Hypotension [Unknown]
  - Neck pain [Unknown]
  - Asthenia [Recovered/Resolved]
  - Pain in extremity [Recovered/Resolved]
  - Pyrexia [Unknown]
  - Vomiting [Recovered/Resolved]
  - Abdominal pain [Unknown]
  - Headache [Recovered/Resolved]
  - Vaccination failure [Unknown]
  - Neutropenia [Unknown]
  - Chromaturia [Unknown]
  - Blood lactic acid increased [Unknown]
  - Granulocyte count decreased [Unknown]
  - Monocyte count decreased [Unknown]
  - C-reactive protein increased [Unknown]
  - Arthralgia [Unknown]
  - Infection [Unknown]
